FAERS Safety Report 5657789-3 (Version None)
Quarter: 2008Q1

REPORT INFORMATION
  Report Type: 
  Country: None (occurrence: None)
  Receive Date: 20080310
  Receipt Date: 20070529
  Transmission Date: 20080703
  Serious: Yes (Hospitalization)
  Sender: FDA-Public Use
  Company Number: US-ASTRAZENECA-2007UW15204

PATIENT
  Age: 17903 Day
  Sex: Male

DRUGS (3)
  1. LISINOPRIL [Suspect]
     Indication: BLOOD PRESSURE INCREASED
     Route: 048
     Dates: start: 20070401
  2. REBIF [Suspect]
     Indication: MULTIPLE SCLEROSIS
     Route: 058
     Dates: start: 20070214
  3. BLOOD PRESSURE MEDICATION [Concomitant]

REACTIONS (2)
  - RENAL FAILURE [None]
  - SWELLING [None]
